FAERS Safety Report 12969374 (Version 2)
Quarter: 2016Q4

REPORT INFORMATION
  Report Type: Spontaneous
  Country: NL (occurrence: NL)
  Receive Date: 20161123
  Receipt Date: 20161129
  Transmission Date: 20170207
  Serious: Yes (Hospitalization, Disabling)
  Sender: FDA-Public Use
  Company Number: NL-PFIZER INC-2016546232

PATIENT
  Age: 58 Year
  Sex: Female
  Weight: 73 kg

DRUGS (2)
  1. PANTOZOL [Suspect]
     Active Substance: PANTOPRAZOLE SODIUM
     Indication: HELICOBACTER INFECTION
     Dosage: 40 MG, 2X/DAY
     Route: 048
     Dates: start: 201401, end: 201508
  2. CINNARIZINE [Concomitant]
     Active Substance: CINNARIZINE
     Dosage: 25 MG, 1X/DAY
     Route: 048
     Dates: start: 199110

REACTIONS (2)
  - Cholelithiasis [Unknown]
  - Depression [Recovering/Resolving]

NARRATIVE: CASE EVENT DATE: 20140108
